FAERS Safety Report 4369140-X (Version None)
Quarter: 2004Q2

REPORT INFORMATION
  Report Type: 
  Country: None (occurrence: None)
  Receive Date: 20040527
  Receipt Date: 20040514
  Transmission Date: 20050107
  Serious: Yes (Death, Hospitalization)
  Sender: FDA-Public Use
  Company Number: 2004032851

PATIENT
  Age: 77 Year
  Sex: Female

DRUGS (8)
  1. NEURONTIN [Suspect]
     Indication: NEUROPATHIC PAIN
     Dosage: 3900 MG (300 MG, 3 IN 1 D), ORAL
     Route: 048
     Dates: start: 20040201, end: 20040301
  2. NEURONTIN [Suspect]
     Indication: PAIN IN EXTREMITY
     Dosage: 3900 MG (300 MG, 3 IN 1 D), ORAL
     Route: 048
     Dates: start: 20040201, end: 20040301
  3. WARFARIN SODIUM [Concomitant]
  4. SPIRONOLACTONE [Concomitant]
  5. LISINOPRIL [Concomitant]
  6. LEVOTHYROXINE SODIUM [Concomitant]
  7. METOPROLOL TARTRATE (METOPROPOL TARTRATE) [Concomitant]
  8. COLCHICINE (COLCHICINE) [Concomitant]

REACTIONS (9)
  - ABNORMAL BEHAVIOUR [None]
  - AGITATION [None]
  - DEHYDRATION [None]
  - DEPRESSED LEVEL OF CONSCIOUSNESS [None]
  - MARKEDLY REDUCED DIETARY INTAKE [None]
  - MOANING [None]
  - SEDATION [None]
  - TREATMENT NONCOMPLIANCE [None]
  - URINARY TRACT INFECTION [None]
